FAERS Safety Report 17765844 (Version 1)
Quarter: 2020Q2

REPORT INFORMATION
  Report Type: Spontaneous
  Country: JP (occurrence: JP)
  Receive Date: 20200511
  Receipt Date: 20200511
  Transmission Date: 20200714
  Serious: Yes (Hospitalization, Other)
  Sender: FDA-Public Use
  Company Number: JP-PFIZER INC-2012053237

PATIENT
  Age: 62 Year
  Sex: Female

DRUGS (2)
  1. PREDNISOLONE. [Concomitant]
     Active Substance: PREDNISOLONE
     Indication: POLYMYOSITIS
     Dosage: UNK, DAILY (5-10 MG)
  2. METHOTREXATE SODIUM. [Suspect]
     Active Substance: METHOTREXATE SODIUM
     Indication: POLYMYOSITIS
     Dosage: 5 MG, 2X/WEEK
     Route: 048

REACTIONS (4)
  - Product use in unapproved indication [Unknown]
  - Lymphoproliferative disorder [Unknown]
  - Off label use [Unknown]
  - Epstein Barr virus positive mucocutaneous ulcer [Recovered/Resolved]
